FAERS Safety Report 16704125 (Version 2)
Quarter: 2019Q3

REPORT INFORMATION
  Report Type: Spontaneous
  Country: US (occurrence: US)
  Receive Date: 20190814
  Receipt Date: 20190927
  Transmission Date: 20191004
  Serious: Yes (Hospitalization)
  Sender: FDA-Public Use
  Company Number: US-ASTRAZENECA-2019SF14045

PATIENT
  Sex: Female
  Weight: 119.7 kg

DRUGS (2)
  1. BYETTA [Suspect]
     Active Substance: EXENATIDE
     Route: 065
  2. HYDROCODONE [Concomitant]
     Active Substance: HYDROCODONE
     Indication: PROCEDURAL PAIN
     Dosage: 10 MG EVERY 4 TO 6 HOURS AS NEEDED
     Route: 048

REACTIONS (3)
  - Device issue [Unknown]
  - Rotator cuff syndrome [Recovering/Resolving]
  - Device malfunction [Unknown]
